FAERS Safety Report 4597514-0 (Version None)
Quarter: 2005Q1

REPORT INFORMATION
  Report Type: 
  Country: None (occurrence: None)
  Receive Date: 20050303
  Receipt Date: 20050223
  Transmission Date: 20050727
  Serious: Yes (Other)
  Sender: FDA-Public Use
  Company Number: PHBS2005BE02994

PATIENT
  Age: 60 Year
  Sex: Male

DRUGS (4)
  1. FOLIC ACID [Concomitant]
     Route: 065
  2. ZOVIRAX [Concomitant]
     Route: 065
  3. BEFACT [Concomitant]
     Route: 065
  4. ZOMETA [Suspect]
     Indication: MULTIPLE MYELOMA
     Route: 042
     Dates: start: 20031201, end: 20040101

REACTIONS (6)
  - GINGIVAL POLYP [None]
  - IMPAIRED HEALING [None]
  - PAIN [None]
  - TOOTH EXTRACTION [None]
  - WOUND DEBRIDEMENT [None]
  - WOUND DEHISCENCE [None]
